FAERS Safety Report 16009152 (Version 3)
Quarter: 2019Q1

REPORT INFORMATION
  Report Type: Report from Study
  Country: US (occurrence: US)
  Receive Date: 20190226
  Receipt Date: 20190308
  Transmission Date: 20190418
  Serious: Yes (Disabling, Other)
  Sender: FDA-Public Use
  Company Number: US-B.I. PHARMACEUTICALS,INC./RIDGEFIELD-2019-BI-007362

PATIENT
  Sex: Male

DRUGS (2)
  1. OFEV [Suspect]
     Active Substance: NINTEDANIB
     Indication: HYPOXIA
  2. OFEV [Suspect]
     Active Substance: NINTEDANIB
     Indication: CHRONIC RESPIRATORY FAILURE
     Dosage: 1 CAPSULE BY MOUTH TWICE A DAY 12 HRS APART WITH FOOD
     Route: 048
     Dates: start: 20190131, end: 20190220

REACTIONS (11)
  - Dyspnoea [Not Recovered/Not Resolved]
  - Cough [Not Recovered/Not Resolved]
  - Rhinorrhoea [Not Recovered/Not Resolved]
  - Musculoskeletal pain [Unknown]
  - Sinus disorder [Unknown]
  - Gastrointestinal haemorrhage [Not Recovered/Not Resolved]
  - Nasopharyngitis [Not Recovered/Not Resolved]
  - Post procedural infection [Unknown]
  - Rectal haemorrhage [Recovered/Resolved]
  - Apnoea [Recovered/Resolved]
  - Diarrhoea [Not Recovered/Not Resolved]
